FAERS Safety Report 24690255 (Version 1)
Quarter: 2024Q4

REPORT INFORMATION
  Report Type: Spontaneous
  Country: US (occurrence: US)
  Receive Date: 20241203
  Receipt Date: 20241203
  Transmission Date: 20250114
  Serious: No
  Sender: SANOFI AVENTIS
  Company Number: US-SANOFI-02316539

PATIENT
  Age: 69 Year
  Sex: Male

DRUGS (1)
  1. LANTUS [Suspect]
     Active Substance: INSULIN GLARGINE
     Indication: Type 2 diabetes mellitus
     Dosage: 18 UNITS IN THE MORNING AND 12 UNITS IN THE EVENING BID
     Route: 065
     Dates: start: 2019

REACTIONS (1)
  - Off label use [Unknown]
